FAERS Safety Report 16818127 (Version 1)
Quarter: 2019Q3

REPORT INFORMATION
  Report Type: Spontaneous
  Country: IT (occurrence: IT)
  Receive Date: 20190917
  Receipt Date: 20190917
  Transmission Date: 20191005
  Serious: Yes (Life-Threatening)
  Sender: FDA-Public Use
  Company Number: IT-PFIZER INC-2019398230

PATIENT
  Age: 79 Year
  Sex: Female

DRUGS (2)
  1. GENTAMICIN. [Suspect]
     Active Substance: GENTAMICIN
     Dosage: UNK
     Route: 042
  2. ZYVOXID [Suspect]
     Active Substance: LINEZOLID
     Indication: URINARY TRACT INFECTION PSEUDOMONAL
     Dosage: 1200 MG, 1X/DAY
     Route: 042

REACTIONS (5)
  - Chronic kidney disease [Recovering/Resolving]
  - Hypokalaemia [Recovering/Resolving]
  - Hypercalcaemia [Recovering/Resolving]
  - Hyperparathyroidism [Recovering/Resolving]
  - Hypomagnesaemia [Recovering/Resolving]
